FAERS Safety Report 8400039-5 (Version None)
Quarter: 2012Q2

REPORT INFORMATION
  Report Type: 
  Country: None (occurrence: None)
  Receive Date: 20120531
  Receipt Date: 20110531
  Transmission Date: 20120825
  Serious: No
  Sender: FDA-Public Use
  Company Number: US-NOVEN-11US002545

PATIENT
  Sex: Male
  Weight: 28 kg

DRUGS (6)
  1. DAYTRANA [Suspect]
     Dosage: 20 MG, QD
     Route: 062
     Dates: end: 20110501
  2. ZOLOFT [Concomitant]
     Indication: ANXIETY
     Dosage: UNK
     Route: 048
  3. CLONIDINE [Concomitant]
     Indication: ANXIETY
     Dosage: UNK
     Route: 048
  4. DAYTRANA [Suspect]
     Indication: ATTENTION DEFICIT/HYPERACTIVITY DISORDER
     Dosage: 30 MG, QD
     Route: 062
     Dates: start: 20110501
  5. DAYTRANA [Suspect]
  6. DAYTRANA [Suspect]
     Indication: OPPOSITIONAL DEFIANT DISORDER

REACTIONS (5)
  - WRONG TECHNIQUE IN DRUG USAGE PROCESS [None]
  - DRUG INEFFECTIVE [None]
  - DECREASED APPETITE [None]
  - IRRITABILITY [None]
  - INCORRECT DRUG ADMINISTRATION DURATION [None]
